FAERS Safety Report 5613743-9 (Version None)
Quarter: 2008Q1

REPORT INFORMATION
  Report Type: 
  Country: None (occurrence: None)
  Receive Date: 20080130
  Receipt Date: 20080118
  Transmission Date: 20080703
  Serious: Yes (Other)
  Sender: FDA-Public Use
  Company Number: 08H-163-0313774-00

PATIENT

DRUGS (1)
  1. HEPARIN SODIUM [Suspect]
     Dosage: INTRA-ARTERIAL
     Route: 013

REACTIONS (5)
  - INJECTION SITE ERYTHEMA [None]
  - INJECTION SITE NECROSIS [None]
  - INJECTION SITE PALLOR [None]
  - INJECTION SITE VESICLES [None]
  - SKIN NECROSIS [None]
